FAERS Safety Report 24417375 (Version 1)
Quarter: 2024Q4

REPORT INFORMATION
  Report Type: Spontaneous
  Country: US (occurrence: US)
  Receive Date: 20241009
  Receipt Date: 20241009
  Transmission Date: 20250115
  Serious: Yes (Other)
  Sender: SANOFI AVENTIS
  Company Number: US-SA-2024SA290950

PATIENT
  Age: 41 Year
  Sex: Male

DRUGS (1)
  1. REZUROCK [Suspect]
     Active Substance: BELUMOSUDIL
     Indication: Chronic graft versus host disease
     Dosage: 200 MG, QD
     Route: 048
     Dates: start: 20240831

REACTIONS (11)
  - Scleroderma [Unknown]
  - Psoriasis [Unknown]
  - Pain [Unknown]
  - Dyspepsia [Unknown]
  - Hypokinesia [Unknown]
  - Limb discomfort [Unknown]
  - Paranasal sinus discomfort [Unknown]
  - Skin disorder [Unknown]
  - Muscle spasms [Unknown]
  - Aspartate aminotransferase increased [Unknown]
  - Alanine aminotransferase increased [Unknown]

NARRATIVE: CASE EVENT DATE: 20240101
